FAERS Safety Report 4725943-0 (Version None)
Quarter: 2005Q3

REPORT INFORMATION
  Report Type: 
  Country: None (occurrence: None)
  Receive Date: 20050727
  Receipt Date: 20050706
  Transmission Date: 20060218
  Serious: Yes (Other)
  Sender: FDA-Public Use
  Company Number: US-GLAXOSMITHKLINE-A0565169A

PATIENT
  Sex: Male

DRUGS (2)
  1. LAMICTAL [Suspect]
     Indication: BIPOLAR DISORDER
     Route: 048
     Dates: start: 20050101
  2. SERZONE [Concomitant]

REACTIONS (4)
  - ABNORMAL BEHAVIOUR [None]
  - NERVOUSNESS [None]
  - STRESS [None]
  - VISUAL ACUITY REDUCED [None]
